FAERS Safety Report 7830468-X (Version None)
Quarter: 2011Q4

REPORT INFORMATION
  Report Type: 
  Country: None (occurrence: None)
  Receive Date: 20111019
  Receipt Date: 20111010
  Transmission Date: 20120403
  Serious: Yes (Hospitalization)
  Sender: FDA-Public Use
  Company Number: LEO-2011-00829

PATIENT
  Age: 31 Year
  Sex: Female
  Weight: 73.6 kg

DRUGS (4)
  1. INNOHEP [Suspect]
     Indication: THROMBOSIS PROPHYLAXIS
     Dosage: 4500 IU (4500IU, 1 IN 1 D), SUBCUTANEOUS    13000 IU (13000 IU, 1 IN 1 D), SUBCUTANEOUS
     Route: 058
     Dates: start: 20111007
  2. INNOHEP [Suspect]
     Indication: PULMONARY EMBOLISM
     Dosage: 4500 IU (4500IU, 1 IN 1 D), SUBCUTANEOUS    13000 IU (13000 IU, 1 IN 1 D), SUBCUTANEOUS
     Route: 058
     Dates: start: 20111007
  3. INNOHEP [Suspect]
     Indication: THROMBOSIS PROPHYLAXIS
     Dosage: 4500 IU (4500IU, 1 IN 1 D), SUBCUTANEOUS    13000 IU (13000 IU, 1 IN 1 D), SUBCUTANEOUS
     Route: 058
     Dates: start: 20110404, end: 20111007
  4. INNOHEP [Suspect]
     Indication: PULMONARY EMBOLISM
     Dosage: 4500 IU (4500IU, 1 IN 1 D), SUBCUTANEOUS    13000 IU (13000 IU, 1 IN 1 D), SUBCUTANEOUS
     Route: 058
     Dates: start: 20110404, end: 20111007

REACTIONS (5)
  - PULMONARY EMBOLISM [None]
  - HYPOPNOEA [None]
  - MATERNAL EXPOSURE DURING PREGNANCY [None]
  - OFF LABEL USE [None]
  - DRUG INEFFECTIVE [None]
